FAERS Safety Report 8436569-X (Version None)
Quarter: 2012Q2

REPORT INFORMATION
  Report Type: 
  Country: None (occurrence: None)
  Receive Date: 20120614
  Receipt Date: 20120605
  Transmission Date: 20120825
  Serious: Yes (Hospitalization, Other)
  Sender: FDA-Public Use
  Company Number: US-ASTRAZENECA-2012SE30203

PATIENT
  Age: 74 Year
  Sex: Female

DRUGS (4)
  1. TOPROL-XL [Suspect]
     Route: 048
  2. NEXIUM [Suspect]
     Route: 048
  3. ASPIRIN [Concomitant]
  4. KARAFATE [Concomitant]

REACTIONS (6)
  - DYSPEPSIA [None]
  - CORONARY ARTERY OCCLUSION [None]
  - ULCER HAEMORRHAGE [None]
  - ULCER [None]
  - DRUG DOSE OMISSION [None]
  - RENAL FAILURE [None]
